FAERS Safety Report 5474291-2 (Version None)
Quarter: 2007Q4

REPORT INFORMATION
  Report Type: 
  Country: None (occurrence: None)
  Receive Date: 20071002
  Receipt Date: 20070705
  Transmission Date: 20080405
  Serious: No
  Sender: FDA-Public Use
  Company Number: US-ASTRAZENECA-2007UW15803

PATIENT
  Age: 76 Year
  Sex: Female

DRUGS (10)
  1. ARIMIDEX [Suspect]
     Indication: BREAST CANCER FEMALE
     Route: 048
     Dates: start: 20070614
  2. COMBIVENT [Concomitant]
  3. ALBUTEROL [Concomitant]
  4. EYE DROPS [Concomitant]
  5. GLUCOPHAGE [Concomitant]
  6. COZAAR [Concomitant]
  7. CARTIA XT [Concomitant]
  8. DIGOXIN [Concomitant]
  9. POTASSIUM CHLORIDE [Concomitant]
  10. LASIX [Concomitant]

REACTIONS (3)
  - DIARRHOEA [None]
  - NAUSEA [None]
  - RETCHING [None]
